FAERS Safety Report 17699807 (Version 2)
Quarter: 2021Q2

REPORT INFORMATION
  Report Type: Spontaneous
  Country: US (occurrence: US)
  Receive Date: 20200423
  Receipt Date: 20210615
  Transmission Date: 20210716
  Serious: Yes (Other)
  Sender: FDA-Public Use
  Company Number: US-ASTRAZENECA-2020SE51911

PATIENT
  Age: 54 Year
  Sex: Female
  Weight: 104.3 kg

DRUGS (37)
  1. PROTONIX [Suspect]
     Active Substance: PANTOPRAZOLE SODIUM
     Indication: GASTROOESOPHAGEAL REFLUX DISEASE
     Route: 065
     Dates: start: 2004, end: 2009
  2. CITALOPRAM [Concomitant]
     Active Substance: CITALOPRAM HYDROBROMIDE
  3. NEXIUM [Suspect]
     Active Substance: ESOMEPRAZOLE MAGNESIUM
     Indication: GASTROOESOPHAGEAL REFLUX DISEASE
     Route: 048
     Dates: start: 200401, end: 200901
  4. PREVACID [Suspect]
     Active Substance: LANSOPRAZOLE
     Indication: GASTROOESOPHAGEAL REFLUX DISEASE
     Route: 065
     Dates: start: 2014, end: 2016
  5. PREVACID 24 HR [Suspect]
     Active Substance: LANSOPRAZOLE
     Indication: GASTROOESOPHAGEAL REFLUX DISEASE
     Route: 065
     Dates: start: 2014, end: 2016
  6. LISINOPRIL  HCTZ [Concomitant]
     Active Substance: HYDROCHLOROTHIAZIDE\LISINOPRIL
  7. DOXYCYCLINE. [Concomitant]
     Active Substance: DOXYCYCLINE
     Indication: INFECTION
     Route: 065
     Dates: start: 2019
  8. HYDROCHLOROTHIAZIDE. [Concomitant]
     Active Substance: HYDROCHLOROTHIAZIDE
     Indication: DIURETIC THERAPY
     Route: 065
     Dates: start: 2016, end: 2017
  9. NEXIUM [Suspect]
     Active Substance: ESOMEPRAZOLE MAGNESIUM
     Indication: GASTROOESOPHAGEAL REFLUX DISEASE
     Route: 048
     Dates: start: 20151102
  10. NEXIUM [Suspect]
     Active Substance: ESOMEPRAZOLE MAGNESIUM
     Indication: GASTROOESOPHAGEAL REFLUX DISEASE
     Dosage: 40MG/DL DAILY
     Route: 048
     Dates: start: 2001, end: 2016
  11. NEXIUM [Suspect]
     Active Substance: ESOMEPRAZOLE MAGNESIUM
     Indication: GASTROOESOPHAGEAL REFLUX DISEASE
     Dosage: GENERIC
     Route: 065
     Dates: start: 20180302
  12. NEXIUM [Suspect]
     Active Substance: ESOMEPRAZOLE MAGNESIUM
     Indication: GASTROOESOPHAGEAL REFLUX DISEASE
     Dosage: GENERIC
     Route: 065
     Dates: start: 20180302
  13. PROTONIX [Suspect]
     Active Substance: PANTOPRAZOLE SODIUM
     Indication: GASTROOESOPHAGEAL REFLUX DISEASE
     Route: 065
     Dates: start: 200401, end: 200901
  14. ATENOLOL. [Concomitant]
     Active Substance: ATENOLOL
  15. AZITHROMYCINE [Concomitant]
     Active Substance: AZITHROMYCIN
     Indication: INFECTION
     Route: 065
     Dates: start: 2011
  16. AMOXICILLIN. [Concomitant]
     Active Substance: AMOXICILLIN
     Indication: INFECTION
     Route: 065
     Dates: start: 2005
  17. IBUPROFEN. [Concomitant]
     Active Substance: IBUPROFEN
     Indication: PAIN
     Route: 065
     Dates: start: 2019
  18. CIPROFLOXACIN. [Concomitant]
     Active Substance: CIPROFLOXACIN
     Indication: INFECTION
     Route: 065
     Dates: start: 2015, end: 2018
  19. ASPIRIN. [Concomitant]
     Active Substance: ASPIRIN
     Indication: PAIN
     Route: 065
     Dates: start: 2008
  20. FLONASE [Concomitant]
     Active Substance: FLUTICASONE PROPIONATE
     Indication: NASAL DECONGESTION THERAPY
     Route: 065
     Dates: start: 2008
  21. PEPCID [Concomitant]
     Active Substance: FAMOTIDINE
     Route: 065
     Dates: start: 2015
  22. BENAZEPRIL [Concomitant]
     Active Substance: BENAZEPRIL HYDROCHLORIDE
     Indication: HYPERTENSION
     Route: 065
     Dates: start: 2005
  23. ARNICA [Concomitant]
     Active Substance: ARNICA MONTANA FLOWER
     Indication: PAIN
     Route: 065
     Dates: start: 2002
  24. VITAMIN D2 [Concomitant]
     Active Substance: ERGOCALCIFEROL
     Indication: HYPOVITAMINOSIS
     Route: 065
     Dates: start: 2016, end: 2017
  25. PRILOSEC [Suspect]
     Active Substance: OMEPRAZOLE MAGNESIUM
     Indication: GASTROOESOPHAGEAL REFLUX DISEASE
     Route: 048
     Dates: start: 2014, end: 2016
  26. PRILOSEC OTC [Suspect]
     Active Substance: OMEPRAZOLE MAGNESIUM
     Indication: GASTROOESOPHAGEAL REFLUX DISEASE
     Route: 048
     Dates: start: 2014, end: 2016
  27. FUROSEMIDE. [Concomitant]
     Active Substance: FUROSEMIDE
     Indication: DIURETIC THERAPY
     Route: 065
     Dates: start: 2014, end: 2016
  28. PRAVASTATIN. [Concomitant]
     Active Substance: PRAVASTATIN
     Indication: BLOOD CHOLESTEROL INCREASED
     Route: 065
     Dates: start: 2014, end: 2017
  29. POTASSIUM [Concomitant]
     Active Substance: POTASSIUM
     Indication: HYPOKALAEMIA
     Route: 065
     Dates: start: 2016
  30. NEXIUM [Suspect]
     Active Substance: ESOMEPRAZOLE MAGNESIUM
     Indication: GASTROOESOPHAGEAL REFLUX DISEASE
     Dosage: GENERIC
     Route: 065
     Dates: start: 2016
  31. NEXIUM 24HR [Suspect]
     Active Substance: ESOMEPRAZOLE MAGNESIUM
     Indication: GASTROOESOPHAGEAL REFLUX DISEASE
     Route: 048
     Dates: start: 2014, end: 2016
  32. LISINOPRIL. [Concomitant]
     Active Substance: LISINOPRIL
     Indication: BLOOD CHOLESTEROL INCREASED
     Route: 065
     Dates: start: 2016, end: 2019
  33. RANITIDINE. [Concomitant]
     Active Substance: RANITIDINE
     Route: 065
     Dates: start: 2013, end: 2015
  34. TUMS [Concomitant]
     Active Substance: CALCIUM CARBONATE
     Route: 065
     Dates: start: 2000
  35. ROLAIDS [Concomitant]
     Active Substance: CALCIUM CARBONATE\MAGNESIUM HYDROXIDE
     Route: 065
     Dates: start: 2000
  36. ALEVE [Concomitant]
     Active Substance: NAPROXEN SODIUM
     Indication: PAIN
     Route: 065
     Dates: start: 2010, end: 2019
  37. PEPTO?BISMOL [Concomitant]
     Active Substance: BISMUTH SUBSALICYLATE
     Route: 065
     Dates: start: 2000

REACTIONS (2)
  - Chronic kidney disease [Not Recovered/Not Resolved]
  - Anxiety [Unknown]

NARRATIVE: CASE EVENT DATE: 2015
